FAERS Safety Report 8787156 (Version 1)
Quarter: 2012Q4

REPORT INFORMATION
  Report Type: 
  Country: US (occurrence: US)
  Receive Date: 20120914
  Receipt Date: 20120914
  Transmission Date: 20130627
  Serious: Yes (Death, Hospitalization, Other)
  Sender: FDA-Public Use
  Company Number: US-ELI_LILLY_AND_COMPANY-US201209002791

PATIENT
  Age: 91 Year
  Sex: Male

DRUGS (1)
  1. CYMBALTA [Suspect]
     Indication: ANGER
     Dosage: 20 mg, qd

REACTIONS (5)
  - Renal failure [Fatal]
  - Cardiac failure congestive [Unknown]
  - Pulmonary oedema [Unknown]
  - Aphagia [Unknown]
  - Off label use [Unknown]
